FAERS Safety Report 9254158 (Version 1)
Quarter: 2013Q2

REPORT INFORMATION
  Report Type: Report from Study
  Country: BR (occurrence: BR)
  Receive Date: 20130425
  Receipt Date: 20130425
  Transmission Date: 20140414
  Serious: Yes (Other)
  Sender: FDA-Public Use
  Company Number: PHHY2013BR038650

PATIENT
  Age: 55 Year
  Sex: Female

DRUGS (2)
  1. SANDOSTATIN LAR [Suspect]
     Indication: ACROMEGALY
     Dosage: MONTHLY
     Route: 030
  2. CODEIN [Concomitant]
     Dosage: 30 MG, EACH 6 HOURS

REACTIONS (2)
  - Diabetes mellitus [Unknown]
  - Lung neoplasm malignant [Unknown]
